FAERS Safety Report 8826558 (Version 1)
Quarter: 2012Q4

REPORT INFORMATION
  Report Type: 
  Country: US (occurrence: US)
  Receive Date: 20121005
  Receipt Date: 20121005
  Transmission Date: 20130627
  Serious: Yes (Other)
  Sender: FDA-Public Use
  Company Number: US-ROCHE-1104585

PATIENT
  Sex: Female

DRUGS (4)
  1. RITUXAN [Suspect]
     Indication: DIFFUSE LARGE B-CELL LYMPHOMA
     Route: 065
  2. RITUXAN [Suspect]
     Indication: OFF LABEL USE
  3. NEUPOGEN [Concomitant]
     Route: 065
  4. PROCRIT [Concomitant]

REACTIONS (4)
  - Hip fracture [Unknown]
  - Back pain [Unknown]
  - White blood cell count decreased [Unknown]
  - Anaemia [Unknown]
